FAERS Safety Report 20374155 (Version 2)
Quarter: 2022Q1

REPORT INFORMATION
  Report Type: Report from Study
  Country: GB (occurrence: GB)
  Receive Date: 20220125
  Receipt Date: 20220331
  Transmission Date: 20220423
  Serious: No
  Sender: FDA-Public Use
  Company Number: GB-UCBSA-2022002418

PATIENT
  Sex: Female
  Weight: 79.3 kg

DRUGS (2)
  1. CERTOLIZUMAB PEGOL [Suspect]
     Active Substance: CERTOLIZUMAB PEGOL
     Indication: Rheumatoid arthritis
     Dosage: 400 MILLIGRAM, EV 2 WEEKS(QOW)
     Route: 058
     Dates: start: 20171120
  2. CERTOLIZUMAB PEGOL [Suspect]
     Active Substance: CERTOLIZUMAB PEGOL
     Dosage: 200 MILLIGRAM, EV 2 WEEKS(QOW)
     Route: 058
     Dates: start: 201801, end: 20220103

REACTIONS (1)
  - SARS-CoV-2 test positive [Unknown]
